FAERS Safety Report 8060504-X (Version None)
Quarter: 2012Q1

REPORT INFORMATION
  Report Type: 
  Country: None (occurrence: None)
  Receive Date: 20120119
  Receipt Date: 20120119
  Transmission Date: 20120608
  Serious: Yes (Disabling)
  Sender: FDA-Public Use
  Company Number: None

PATIENT
  Sex: Male
  Weight: 102.3 kg

DRUGS (3)
  1. PROPECIA [Suspect]
     Indication: ANDROGENETIC ALOPECIA
     Dosage: 5MG DAILY ORAL
     Route: 048
     Dates: start: 19950101, end: 20020101
  2. PROSCAR [Suspect]
     Dosage: 1.5 MG DAILY ORAL
     Route: 048
  3. MINOXIDIL [Concomitant]

REACTIONS (3)
  - ERECTILE DYSFUNCTION [None]
  - LIBIDO DECREASED [None]
  - HORMONE LEVEL ABNORMAL [None]
